FAERS Safety Report 8430674-X (Version None)
Quarter: 2012Q2

REPORT INFORMATION
  Report Type: 
  Country: None (occurrence: None)
  Receive Date: 20120323
  Receipt Date: 20110606
  Transmission Date: 20120825
  Serious: Yes (Other)
  Sender: FDA-Public Use
  Company Number: 163-21880-11060954

PATIENT
  Age: 73 Year
  Sex: Male
  Weight: 92.5 kg

DRUGS (4)
  1. BENDAMUSTINE [Concomitant]
  2. DEXAMETHASONE [Concomitant]
  3. REVLIMID [Suspect]
     Indication: MULTIPLE MYELOMA
     Dosage: 15 MG, DAILY FOR 21/28 DAYS, PO; 10 MG, 1 IN 1 D, PO
     Route: 048
     Dates: start: 20101228, end: 20110606
  4. REVLIMID [Suspect]
     Indication: MULTIPLE MYELOMA
     Dosage: 15 MG, DAILY FOR 21/28 DAYS, PO; 10 MG, 1 IN 1 D, PO
     Route: 048
     Dates: start: 20110601

REACTIONS (1)
  - NEUTROPENIA [None]
